FAERS Safety Report 24231599 (Version 2)
Quarter: 2025Q4

REPORT INFORMATION
  Report Type: Spontaneous
  Country: US (occurrence: US)
  Receive Date: 20240821
  Receipt Date: 20251112
  Transmission Date: 20260117
  Serious: Yes (Hospitalization, Other)
  Sender: AUROBINDO
  Company Number: US-MLMSERVICE-20191031-2024613-1

PATIENT
  Age: 69 Year
  Sex: Male

DRUGS (2)
  1. MYCOPHENOLIC ACID [Suspect]
     Active Substance: MYCOPHENOLIC ACID
     Indication: Glomerulonephritis
     Dosage: UNK
     Route: 065
  2. PREDNISONE [Suspect]
     Active Substance: PREDNISONE
     Indication: Glomerulonephritis
     Dosage: UNK
     Route: 065

REACTIONS (6)
  - Cryptococcosis [Recovering/Resolving]
  - Cryptococcal cutaneous infection [Recovering/Resolving]
  - Disseminated cryptococcosis [Recovering/Resolving]
  - Meningitis cryptococcal [Recovering/Resolving]
  - Meningitis bacterial [Recovering/Resolving]
  - Pneumonia cryptococcal [Recovering/Resolving]
